FAERS Safety Report 14214696 (Version 16)
Quarter: 2024Q4

REPORT INFORMATION
  Report Type: Spontaneous
  Country: US (occurrence: US)
  Receive Date: 20171122
  Receipt Date: 20241206
  Transmission Date: 20250115
  Serious: Yes (Hospitalization, Other)
  Sender: PFIZER
  Company Number: US-PFIZER INC-2017500309

PATIENT
  Age: 65 Year
  Sex: Male
  Weight: 63.492 kg

DRUGS (4)
  1. INLYTA [Suspect]
     Active Substance: AXITINIB
     Indication: Renal cell carcinoma
     Dosage: MIGHT HAD TO TAKE 3 PILLS
     Route: 048
     Dates: start: 201408
  2. INLYTA [Suspect]
     Active Substance: AXITINIB
     Indication: Brain neoplasm
     Dosage: 5 MG WITH BID-TID (PER TOLERANCE)
  3. INLYTA [Suspect]
     Active Substance: AXITINIB
     Dosage: TAKE 3 TABLETS BY MOUTH DAILY
     Route: 048
  4. INLYTA [Suspect]
     Active Substance: AXITINIB
     Dosage: 15 MG, 1X/DAY
     Route: 048

REACTIONS (6)
  - Coronary artery bypass [Unknown]
  - Dental operation [Unknown]
  - Off label use [Unknown]
  - Diarrhoea [Not Recovered/Not Resolved]
  - Anxiety [Unknown]
  - Malaise [Unknown]

NARRATIVE: CASE EVENT DATE: 20160301
